FAERS Safety Report 5045518-6 (Version None)
Quarter: 2006Q2

REPORT INFORMATION
  Report Type: 
  Country: None (occurrence: None)
  Receive Date: 20060629
  Receipt Date: 20060616
  Transmission Date: 20061013
  Serious: Yes (Other)
  Sender: FDA-Public Use
  Company Number: 2006076753

PATIENT
  Age: 65 Year
  Sex: Female
  Weight: 55 kg

DRUGS (3)
  1. VFEND [Suspect]
     Indication: FUNGAL INFECTION
     Dosage: SEE IMAGE
     Route: 048
     Dates: start: 20060406, end: 20060406
  2. VFEND [Suspect]
     Indication: FUNGAL INFECTION
     Dosage: SEE IMAGE
     Route: 048
     Dates: start: 20060407, end: 20060407
  3. AMPHOTERICIN B [Concomitant]

REACTIONS (4)
  - CONFUSIONAL STATE [None]
  - DISORIENTATION [None]
  - MENTAL DISORDER DUE TO A GENERAL MEDICAL CONDITION [None]
  - RESTLESSNESS [None]
